FAERS Safety Report 21464425 (Version 4)
Quarter: 2023Q2

REPORT INFORMATION
  Report Type: Other
  Country: AT (occurrence: None)
  Receive Date: 20221017
  Receipt Date: 20230405
  Transmission Date: 20230721
  Serious: No
  Sender: FDA-Public Use
  Company Number: AT-ROCHE-3200098

PATIENT
  Age: 27 Year
  Sex: Female
  Weight: 58 kg

DRUGS (2)
  1. OCRELIZUMAB [Suspect]
     Active Substance: OCRELIZUMAB
     Indication: Relapsing-remitting multiple sclerosis
     Dosage: SUBSEQUENT DOSES OF OCRELIZUMAB WAS RECEIVED ON: 23/OCT/2019 (260 ML), 27/APR/2020 (520 ML), 04/NOV/
     Route: 042
     Dates: start: 20191007, end: 20191007
  2. OCRELIZUMAB [Suspect]
     Active Substance: OCRELIZUMAB
     Route: 042
     Dates: start: 20211217, end: 20211217

REACTIONS (1)
  - COVID-19 [Recovered/Resolved]

NARRATIVE: CASE EVENT DATE: 20211001
